FAERS Safety Report 19410407 (Version 1)
Quarter: 2021Q2

REPORT INFORMATION
  Report Type: Spontaneous
  Country: US (occurrence: US)
  Receive Date: 20210611
  Receipt Date: 20210611
  Transmission Date: 20210717
  Serious: Yes (Other)
  Sender: FDA-Public Use
  Company Number: None

PATIENT
  Age: 34 Year
  Sex: Female
  Weight: 63.45 kg

DRUGS (9)
  1. AIMOVIG [Concomitant]
     Active Substance: ERENUMAB-AOOE
  2. GABAPENTIN. [Concomitant]
     Active Substance: GABAPENTIN
  3. ALLEGRA [Concomitant]
     Active Substance: FEXOFENADINE HYDROCHLORIDE
  4. PROBIOTIC [Concomitant]
     Active Substance: PROBIOTICS NOS
  5. SINGULAIR [Concomitant]
     Active Substance: MONTELUKAST SODIUM
  6. TIZANIDINE. [Concomitant]
     Active Substance: TIZANIDINE
  7. CHANTIX [Suspect]
     Active Substance: VARENICLINE TARTRATE
     Indication: SMOKING CESSATION THERAPY
     Dosage: ?          QUANTITY:1 TABLET(S);?
     Route: 048
     Dates: start: 20210414
  8. ROPINIROLE. [Concomitant]
     Active Substance: ROPINIROLE
  9. VRAYLAR [Concomitant]
     Active Substance: CARIPRAZINE

REACTIONS (1)
  - Hypersomnia [None]

NARRATIVE: CASE EVENT DATE: 20210414
